FAERS Safety Report 23579583 (Version 5)
Quarter: 2024Q2

REPORT INFORMATION
  Report Type: Spontaneous
  Country: US (occurrence: US)
  Receive Date: 20240229
  Receipt Date: 20240403
  Transmission Date: 20240716
  Serious: Yes (Hospitalization, Other)
  Sender: FDA-Public Use
  Company Number: US-SANOFI-01958995

PATIENT
  Age: 62 Year
  Sex: Male

DRUGS (2)
  1. DUPIXENT [Suspect]
     Active Substance: DUPILUMAB
     Indication: Eczema
     Dosage: 300 MG, QOW
     Route: 058
     Dates: start: 20190703, end: 20240124
  2. DICLOFENAC [Suspect]
     Active Substance: DICLOFENAC
     Indication: Back pain
     Route: 065

REACTIONS (12)
  - Fatigue [Recovering/Resolving]
  - Nausea [Recovering/Resolving]
  - Decreased appetite [Recovering/Resolving]
  - Chromaturia [Recovering/Resolving]
  - Cholelithiasis [Unknown]
  - Autoimmune hepatitis [Recovering/Resolving]
  - Hepatic enzyme increased [Recovering/Resolving]
  - Aspartate aminotransferase increased [Unknown]
  - Conjunctivitis [Recovered/Resolved]
  - Constipation [Unknown]
  - Back pain [Unknown]
  - Intervertebral disc protrusion [Unknown]

NARRATIVE: CASE EVENT DATE: 20231122
